FAERS Safety Report 11072139 (Version 1)
Quarter: 2015Q2

REPORT INFORMATION
  Report Type: Spontaneous
  Country: US (occurrence: None)
  Receive Date: 20150427
  Receipt Date: 20150427
  Transmission Date: 20150821
  Serious: No
  Sender: FDA-Public Use
  Company Number: None

PATIENT
  Age: 59 Year
  Sex: Female
  Weight: 72.58 kg

DRUGS (2)
  1. FLAGYL [Suspect]
     Active Substance: METRONIDAZOLE\METRONIDAZOLE HYDROCHLORIDE
     Indication: DIVERTICULITIS
     Dosage: 500MG/1 PILL
     Route: 048
     Dates: start: 20150415, end: 20150416
  2. CIPRO [Suspect]
     Active Substance: CIPROFLOXACIN HYDROCHLORIDE
     Indication: DIVERTICULITIS
     Dosage: 500MG/1 PILL
     Route: 048
     Dates: start: 20150415, end: 20150416

REACTIONS (10)
  - Ocular hyperaemia [None]
  - Sinus congestion [None]
  - Tracheal pain [None]
  - Malaise [None]
  - Local swelling [None]
  - Headache [None]
  - Pain [None]
  - Musculoskeletal stiffness [None]
  - Tongue discolouration [None]
  - Dry mouth [None]

NARRATIVE: CASE EVENT DATE: 20150415
